FAERS Safety Report 5449808-4 (Version None)
Quarter: 2007Q3

REPORT INFORMATION
  Report Type: 
  Country: None (occurrence: None)
  Receive Date: 20070910
  Receipt Date: 20070823
  Transmission Date: 20080115
  Serious: Yes (Hospitalization)
  Sender: FDA-Public Use
  Company Number: CFNT Y-138

PATIENT
  Age: 53 Year
  Sex: Female

DRUGS (4)
  1. CEFDITOREN PIVOXIL [Suspect]
     Indication: INFECTION
     Dosage: 100 MG, QD, ORAL
     Route: 048
     Dates: start: 20070621
  2. CEFDITOREN PIVOXIL [Suspect]
     Indication: INFLAMMATION
     Dosage: 100 MG, QD, ORAL
     Route: 048
     Dates: start: 20070621
  3. CEFDITOREN PIVOXIL [Suspect]
     Indication: PROPHYLAXIS
     Dosage: 100 MG, QD, ORAL
     Route: 048
     Dates: start: 20070621
  4. NEUTASE (LYSOZYME CHLORIDE) [Concomitant]

REACTIONS (4)
  - CONDITION AGGRAVATED [None]
  - NASOPHARYNGITIS [None]
  - PYREXIA [None]
  - TREMOR [None]
